FAERS Safety Report 9344608 (Version 2)
Quarter: 2013Q3

REPORT INFORMATION
  Report Type: Spontaneous
  Country: US (occurrence: US)
  Receive Date: 20130612
  Receipt Date: 20130725
  Transmission Date: 20140515
  Serious: Yes (Other)
  Sender: FDA-Public Use
  Company Number: US-AMGEN-USASP2013040820

PATIENT
  Age: 47 Year
  Sex: Female

DRUGS (3)
  1. ENBREL [Suspect]
     Indication: PSORIATIC ARTHROPATHY
     Dosage: 50 MG, QWK
     Route: 065
     Dates: start: 20080716
  2. TAMOXIFEN [Concomitant]
     Dosage: UNK
  3. METHOTREXATE [Concomitant]
     Dosage: UNK

REACTIONS (5)
  - Breast cancer [Recovered/Resolved]
  - Pain [Recovered/Resolved]
  - Pharyngitis streptococcal [Recovered/Resolved]
  - Streptococcal infection [Not Recovered/Not Resolved]
  - Psoriasis [Not Recovered/Not Resolved]
